FAERS Safety Report 9688600 (Version 2)
Quarter: 2014Q1

REPORT INFORMATION
  Report Type: Spontaneous
  Country: US (occurrence: US)
  Receive Date: 20131114
  Receipt Date: 20140205
  Transmission Date: 20141002
  Serious: No
  Sender: FDA-Public Use
  Company Number: US-009507513-1311USA003780

PATIENT
  Age: 20 Year
  Sex: Female
  Weight: 93.42 kg

DRUGS (1)
  1. IMPLANON [Suspect]
     Dosage: STANDARD DOSE
     Route: 059
     Dates: start: 20101107

REACTIONS (3)
  - Device dislocation [Unknown]
  - Medical device complication [Unknown]
  - No adverse event [Unknown]
